FAERS Safety Report 12072302 (Version 3)
Quarter: 2022Q4

REPORT INFORMATION
  Report Type: Report from Study
  Country: CR (occurrence: CR)
  Receive Date: 20160212
  Receipt Date: 20221229
  Transmission Date: 20230113
  Serious: Yes (Hospitalization, Other)
  Sender: FDA-Public Use
  Company Number: PHHY2016CR018492

PATIENT
  Sex: Male

DRUGS (2)
  1. DIOVAN [Suspect]
     Active Substance: VALSARTAN
     Indication: Hypertension
     Dosage: 160 MG, QD (1 TABLET)
     Route: 065
     Dates: end: 20160209
  2. DIOVAN [Suspect]
     Active Substance: VALSARTAN
     Dosage: 160 MG, QD
     Route: 048

REACTIONS (5)
  - Myocardial infarction [Recovered/Resolved]
  - Heart rate irregular [Unknown]
  - Anger [Unknown]
  - Pain in extremity [Unknown]
  - Spinal disorder [Unknown]

NARRATIVE: CASE EVENT DATE: 20090101
